FAERS Safety Report 12068893 (Version 3)
Quarter: 2016Q1

REPORT INFORMATION
  Report Type: Spontaneous
  Country: DE (occurrence: DE)
  Receive Date: 20160211
  Receipt Date: 20160302
  Transmission Date: 20160526
  Serious: Yes (Other)
  Sender: FDA-Public Use
  Company Number: DE-BAXTER-2016BAX000353

PATIENT
  Age: 85 Year
  Sex: Male
  Weight: 85 kg

DRUGS (2)
  1. HEPARIN [Suspect]
     Active Substance: HEPARIN SODIUM
     Indication: ANTICOAGULANT THERAPY
     Route: 010
  2. PHOXILIUM [Suspect]
     Active Substance: CALCIUM CHLORIDE\MAGNESIUM CHLORIDE\POTASSIUM CHLORIDE\SODIUM BICARBONATE\SODIUM CHLORIDE\SODIUM PHOSPHATE, DIBASIC
     Indication: RENAL REPLACEMENT THERAPY
     Route: 010
     Dates: start: 20160101

REACTIONS (1)
  - Acidosis [Recovered/Resolved]

NARRATIVE: CASE EVENT DATE: 20160101
